FAERS Safety Report 6015084-7 (Version None)
Quarter: 2008Q4

REPORT INFORMATION
  Report Type: 
  Country: None (occurrence: None)
  Receive Date: 20081222
  Receipt Date: 20081211
  Transmission Date: 20090506
  Serious: Yes (Hospitalization)
  Sender: FDA-Public Use
  Company Number: FR-JNJFOC-20081203282

PATIENT
  Age: 51 Year
  Sex: Female

DRUGS (8)
  1. REMICADE [Suspect]
     Dosage: INFUSION 30
     Route: 042
  2. REMICADE [Suspect]
     Dosage: DOSE FROM INFUSION 9 TO INFUSION 30
     Route: 042
  3. REMICADE [Suspect]
     Dosage: 8TH INFUSION
     Route: 042
  4. REMICADE [Suspect]
     Indication: PSORIATIC ARTHROPATHY
     Dosage: DOSE FOR INFUSION 1 TO 7 (3 MG/KG)
     Route: 042
  5. NOVATREX [Suspect]
     Indication: PSORIATIC ARTHROPATHY
  6. SPECIAFOLDINE [Concomitant]
  7. PROPOFAN [Concomitant]
  8. ORAL CONTRACEPTIVE [Concomitant]

REACTIONS (1)
  - MALIGNANT MELANOMA [None]
